FAERS Safety Report 14913982 (Version 1)
Quarter: 2018Q2

REPORT INFORMATION
  Report Type: Spontaneous
  Country: US (occurrence: US)
  Receive Date: 20180518
  Receipt Date: 20180518
  Transmission Date: 20180711
  Serious: Yes (Hospitalization)
  Sender: FDA-Public Use
  Company Number: US-TEVA-2018-US-892090

PATIENT
  Sex: Male

DRUGS (2)
  1. CAPECITABINE. [Suspect]
     Active Substance: CAPECITABINE
     Indication: OESOPHAGEAL CARCINOMA
     Route: 065
     Dates: start: 201507
  2. DOXITAXEL [Suspect]
     Active Substance: DOCETAXEL
     Route: 065

REACTIONS (16)
  - Dihydropyrimidine dehydrogenase deficiency [Unknown]
  - Alopecia [Unknown]
  - Skin exfoliation [Unknown]
  - Skin ulcer [Unknown]
  - Swelling [Unknown]
  - Blister [Unknown]
  - Sensory loss [Unknown]
  - Speech disorder [Unknown]
  - Stevens-Johnson syndrome [Unknown]
  - Onychomadesis [Unknown]
  - Erythema [Unknown]
  - Mouth ulceration [Unknown]
  - Febrile neutropenia [Unknown]
  - Visual impairment [Unknown]
  - Diarrhoea [Unknown]
  - Gastric ulcer [Unknown]

NARRATIVE: CASE EVENT DATE: 201507
